FAERS Safety Report 11525499 (Version 3)
Quarter: 2016Q2

REPORT INFORMATION
  Report Type: Spontaneous
  Country: CH (occurrence: CH)
  Receive Date: 20150918
  Receipt Date: 20160630
  Transmission Date: 20160815
  Serious: Yes (Life-Threatening, Hospitalization, Other)
  Sender: FDA-Public Use
  Company Number: CH-GILEAD-2015-0169684

PATIENT
  Age: 56 Year
  Sex: Male
  Weight: 85 kg

DRUGS (11)
  1. RITUXIMAB [Concomitant]
     Active Substance: RITUXIMAB
     Indication: B-CELL LYMPHOMA
  2. PANTOPRAZOLE [Concomitant]
     Active Substance: PANTOPRAZOLE SODIUM
     Indication: HYPERCHLORHYDRIA
     Dosage: UNK
     Dates: start: 2013
  3. NOPIL [Concomitant]
     Active Substance: SULFAMETHOXAZOLE\TRIMETHOPRIM
     Dosage: UNK
     Dates: start: 2013
  4. BENDAMUSTINE [Concomitant]
     Active Substance: BENDAMUSTINE
  5. MARCUMAR [Concomitant]
     Active Substance: PHENPROCOUMON
     Indication: EMBOLISM
     Dosage: UNK
     Dates: start: 2007
  6. CANDESARTAN PLUS [Concomitant]
     Active Substance: CANDESARTAN CILEXETIL\HYDROCHLOROTHIAZIDE
     Dosage: UNK
  7. ZYDELIG [Suspect]
     Active Substance: IDELALISIB
     Indication: B-CELL LYMPHOMA
     Dosage: 150 MG, BID
     Route: 048
     Dates: start: 20150511, end: 20150827
  8. CARVEDIOL [Concomitant]
     Active Substance: CARVEDILOL
     Indication: HYPERTENSION
     Dosage: UNK
  9. FLUCONAZOLE. [Concomitant]
     Active Substance: FLUCONAZOLE
     Dosage: UNK
     Dates: start: 2013
  10. ZYDELIG [Suspect]
     Active Substance: IDELALISIB
     Dosage: 100 MG, BID
     Route: 048
  11. VALTREX [Concomitant]
     Active Substance: VALACYCLOVIR HYDROCHLORIDE
     Dosage: UNK
     Dates: start: 2013

REACTIONS (8)
  - Diarrhoea [Recovered/Resolved]
  - Enterocolitis [Recovering/Resolving]
  - Pancytopenia [Unknown]
  - Renal failure [Recovered/Resolved]
  - Dehydration [Unknown]
  - International normalised ratio abnormal [Unknown]
  - Vertigo [Recovered/Resolved]
  - Stem cell transplant [Unknown]

NARRATIVE: CASE EVENT DATE: 201505
